FAERS Safety Report 6307660-9 (Version None)
Quarter: 2009Q3

REPORT INFORMATION
  Report Type: 
  Country: None (occurrence: None)
  Receive Date: 20090813
  Receipt Date: 20090803
  Transmission Date: 20100115
  Serious: Yes (Hospitalization, Other)
  Sender: FDA-Public Use
  Company Number: PHHY2009JP15827

PATIENT
  Sex: Male
  Weight: 49 kg

DRUGS (10)
  1. TEGRETOL [Suspect]
     Indication: EPILEPSY
     Dosage: 1000 MG PER DAY
     Route: 048
     Dates: end: 20090410
  2. TEGRETOL [Suspect]
     Dosage: 700 MG PER DAY
     Route: 048
     Dates: start: 20090411, end: 20090702
  3. TEGRETOL [Suspect]
     Dosage: 500 MG PER DAY
     Route: 048
     Dates: start: 20090703, end: 20090730
  4. TEGRETOL [Suspect]
     Dosage: 300 MG PER DAY
     Route: 048
     Dates: start: 20090731
  5. RIVOTRIL [Suspect]
     Indication: EPILEPSY
     Dosage: 2 MG/DAY
     Route: 048
     Dates: end: 20090410
  6. RIVOTRIL [Suspect]
     Dosage: 1.5 MG/DAY
     Route: 048
     Dates: start: 20090411
  7. HYSERENIN [Suspect]
     Indication: EPILEPSY
     Dosage: 1800 MG/DAY
     Route: 048
     Dates: end: 20090410
  8. HYSERENIN [Suspect]
     Dosage: 1200 MG/DAY
     Route: 048
     Dates: start: 20090411, end: 20090702
  9. HYSERENIN [Suspect]
     Dosage: 1000 MG/DAY
     Route: 048
     Dates: start: 20090703
  10. PHENOBARBITAL TAB [Suspect]
     Indication: EPILEPSY
     Dosage: 30 MG/DAY
     Route: 048
     Dates: start: 20090411

REACTIONS (18)
  - ALANINE AMINOTRANSFERASE INCREASED [None]
  - ANAEMIA [None]
  - ASPARTATE AMINOTRANSFERASE INCREASED [None]
  - BLOOD BILIRUBIN INCREASED [None]
  - BLOOD LACTATE DEHYDROGENASE INCREASED [None]
  - BLOOD POTASSIUM INCREASED [None]
  - BLOOD SODIUM DECREASED [None]
  - BLOOD UREA INCREASED [None]
  - HAEMATOCRIT DECREASED [None]
  - HAEMOGLOBIN DECREASED [None]
  - HYPONATRAEMIA [None]
  - PLATELET COUNT DECREASED [None]
  - PNEUMONIA [None]
  - PYELONEPHRITIS [None]
  - PYREXIA [None]
  - RED BLOOD CELL COUNT DECREASED [None]
  - SEPTIC SHOCK [None]
  - WHITE BLOOD CELL COUNT INCREASED [None]
